FAERS Safety Report 13711512 (Version 1)
Quarter: 2017Q3

REPORT INFORMATION
  Report Type: Spontaneous
  Country: GR (occurrence: GR)
  Receive Date: 20170703
  Receipt Date: 20170703
  Transmission Date: 20171127
  Serious: Yes (Other)
  Sender: FDA-Public Use
  Company Number: GR-BAYER-2017-125657

PATIENT
  Age: 73 Year
  Sex: Female

DRUGS (5)
  1. CLINDAMYCIN. [Concomitant]
     Active Substance: CLINDAMYCIN
     Indication: INFLAMMATION
     Dosage: UNK
     Route: 048
     Dates: start: 20170620, end: 20170627
  2. URSOFALK [Concomitant]
     Active Substance: URSODIOL
     Dosage: 250 MG, UNK
     Route: 048
  3. LOPRESSOR [Concomitant]
     Active Substance: METOPROLOL TARTRATE
     Dosage: UNK
     Route: 048
  4. T4 [Concomitant]
     Active Substance: LEVOTHYROXINE
     Dosage: UNK
     Route: 048
  5. CIPROXIN 500 MG [Suspect]
     Active Substance: CIPROFLOXACIN
     Indication: INFLAMMATION
     Dosage: 500 MG, BID
     Route: 048
     Dates: start: 20170620, end: 20170627

REACTIONS (5)
  - Ear discomfort [Recovering/Resolving]
  - Insomnia [Not Recovered/Not Resolved]
  - Hallucination [Not Recovered/Not Resolved]
  - Gait inability [Not Recovered/Not Resolved]
  - Blood pressure increased [Recovered/Resolved]

NARRATIVE: CASE EVENT DATE: 20170625
